FAERS Safety Report 8021674-2 (Version None)
Quarter: 2011Q4

REPORT INFORMATION
  Report Type: 
  Country: None (occurrence: None)
  Receive Date: 20111230
  Receipt Date: 20111216
  Transmission Date: 20120403
  Serious: Yes (Hospitalization)
  Sender: FDA-Public Use
  Company Number: JPI-P-018820

PATIENT
  Age: 62 Year
  Sex: Female

DRUGS (3)
  1. XYREM [Suspect]
     Indication: NARCOLEPSY
     Dosage: 6 GM (3 GM, 2 IN 1 D),ORAL, ORAL, 9 GM (4.5 GM, 2 IN 1 D),ORAL
     Route: 048
     Dates: start: 20090901, end: 20090901
  2. XYREM [Suspect]
     Indication: NARCOLEPSY
     Dosage: 6 GM (3 GM, 2 IN 1 D),ORAL, ORAL, 9 GM (4.5 GM, 2 IN 1 D),ORAL
     Route: 048
     Dates: start: 20090916, end: 20090901
  3. XYREM [Suspect]
     Indication: NARCOLEPSY
     Dosage: 6 GM (3 GM, 2 IN 1 D),ORAL, ORAL, 9 GM (4.5 GM, 2 IN 1 D),ORAL
     Route: 048
     Dates: start: 20090925

REACTIONS (11)
  - HYPERHIDROSIS [None]
  - INITIAL INSOMNIA [None]
  - SINUSITIS [None]
  - EAR CONGESTION [None]
  - SURGERY [None]
  - VERTIGO [None]
  - ANOSMIA [None]
  - TREMOR [None]
  - FLUSHING [None]
  - MIGRAINE [None]
  - SINUS CONGESTION [None]
